FAERS Safety Report 17519346 (Version 1)
Quarter: 2020Q1

REPORT INFORMATION
  Report Type: Spontaneous
  Country: CA (occurrence: CA)
  Receive Date: 20200309
  Receipt Date: 20200309
  Transmission Date: 20200409
  Serious: Yes (Death)
  Sender: FDA-Public Use
  Company Number: CA-ELI_LILLY_AND_COMPANY-CA202003001745

PATIENT
  Age: 68 Year
  Sex: Male

DRUGS (1)
  1. CYRAMZA [Suspect]
     Active Substance: RAMUCIRUMAB
     Indication: GASTROOESOPHAGEAL CANCER
     Dosage: 610 MG, UNKNOWN
     Route: 042

REACTIONS (2)
  - Death [Fatal]
  - Injury [Unknown]

NARRATIVE: CASE EVENT DATE: 20200227
